FAERS Safety Report 25360576 (Version 1)
Quarter: 2025Q2

REPORT INFORMATION
  Report Type: Spontaneous
  Country: FR (occurrence: FR)
  Receive Date: 20250527
  Receipt Date: 20250527
  Transmission Date: 20250716
  Serious: Yes (Death, Other)
  Sender: AUROBINDO
  Company Number: FR-MLMSERVICE-20250411-PI476729-00152-2

PATIENT
  Age: 70 Year
  Sex: Male

DRUGS (11)
  1. CARBOPLATIN [Suspect]
     Active Substance: CARBOPLATIN
     Indication: Squamous cell carcinoma of skin
     Route: 065
     Dates: start: 201910
  2. CARBOPLATIN [Suspect]
     Active Substance: CARBOPLATIN
     Indication: Metastases to liver
  3. FLUOROURACIL [Suspect]
     Active Substance: FLUOROURACIL
     Indication: Squamous cell carcinoma of skin
     Route: 065
     Dates: start: 2019, end: 2020
  4. FLUOROURACIL [Suspect]
     Active Substance: FLUOROURACIL
     Indication: Metastases to liver
  5. PANITUMUMAB [Suspect]
     Active Substance: PANITUMUMAB
     Indication: Squamous cell carcinoma of skin
     Route: 065
     Dates: start: 2019, end: 2020
  6. PANITUMUMAB [Suspect]
     Active Substance: PANITUMUMAB
     Indication: Metastases to liver
  7. CETUXIMAB [Suspect]
     Active Substance: CETUXIMAB
     Indication: Squamous cell carcinoma of skin
     Route: 065
     Dates: start: 201910
  8. CETUXIMAB [Suspect]
     Active Substance: CETUXIMAB
     Indication: Metastases to liver
  9. EVEROLIMUS [Concomitant]
     Active Substance: EVEROLIMUS
     Indication: Immunosuppressant drug therapy
     Route: 065
  10. PREDNISOLONE [Concomitant]
     Active Substance: PREDNISOLONE
     Indication: Immunosuppressant drug therapy
     Route: 065
  11. CEMIPLIMAB [Concomitant]
     Active Substance: CEMIPLIMAB
     Indication: Squamous cell carcinoma of skin
     Route: 065
     Dates: start: 20200501

REACTIONS (12)
  - Transplant rejection [Fatal]
  - Interstitial lung disease [Fatal]
  - Myocarditis [Fatal]
  - Anaphylactic reaction [Unknown]
  - Haematotoxicity [Unknown]
  - Metastases to liver [Unknown]
  - Metastases to lymph nodes [Unknown]
  - Acute respiratory failure [Unknown]
  - Skin disorder [Unknown]
  - Therapy partial responder [Unknown]
  - Skin toxicity [Unknown]
  - Off label use [Unknown]

NARRATIVE: CASE EVENT DATE: 20190101
